FAERS Safety Report 6009347-9 (Version None)
Quarter: 2008Q4

REPORT INFORMATION
  Report Type: 
  Country: None (occurrence: None)
  Receive Date: 20081217
  Receipt Date: 20081006
  Transmission Date: 20090506
  Serious: No
  Sender: FDA-Public Use
  Company Number: US-BAYER-200828676NA

PATIENT
  Age: 29 Year
  Sex: Female
  Weight: 64 kg

DRUGS (2)
  1. YAZ [Suspect]
     Indication: CONTRACEPTION
     Route: 048
     Dates: start: 20080706
  2. BUSPIRONE HCL [Concomitant]
     Indication: DEPRESSION
     Dosage: TOTAL DAILY DOSE: 300 MG  UNIT DOSE: 150 MG

REACTIONS (4)
  - AFFECT LABILITY [None]
  - CRYING [None]
  - NAUSEA [None]
  - VOMITING [None]
